FAERS Safety Report 15803301 (Version 1)
Quarter: 2019Q1

REPORT INFORMATION
  Report Type: Spontaneous
  Country: GB (occurrence: GB)
  Receive Date: 20190109
  Receipt Date: 20190109
  Transmission Date: 20190417
  Serious: Yes (Other)
  Sender: FDA-Public Use
  Company Number: GB-TEVA-2019-GB-996097

PATIENT
  Age: 38 Year
  Sex: Male

DRUGS (1)
  1. TEVA UK LANSOPRAZOLE [Suspect]
     Active Substance: LANSOPRAZOLE
     Indication: DYSPEPSIA
     Dosage: 60 MILLIGRAM DAILY;
     Route: 048
     Dates: start: 20181120, end: 20181207

REACTIONS (8)
  - Vomiting [Unknown]
  - Drug ineffective [Unknown]
  - Product substitution issue [Unknown]
  - Cold sweat [Unknown]
  - Gastrooesophageal reflux disease [Not Recovered/Not Resolved]
  - Abdominal distension [Unknown]
  - Cough [Unknown]
  - Abdominal pain upper [Unknown]

NARRATIVE: CASE EVENT DATE: 20181121
